FAERS Safety Report 6755802-3 (Version None)
Quarter: 2010Q2

REPORT INFORMATION
  Report Type: 
  Country: None (occurrence: None)
  Receive Date: 20100604
  Receipt Date: 20100304
  Transmission Date: 20101027
  Serious: Yes (Hospitalization, Other)
  Sender: FDA-Public Use
  Company Number: US-ASTRAZENECA-2007UW02062

PATIENT
  Age: 62 Year
  Sex: Female
  Weight: 47.6 kg

DRUGS (26)
  1. SEROQUEL [Suspect]
     Indication: DEPRESSION
     Route: 048
     Dates: start: 19980101
  2. SEROQUEL [Suspect]
     Dosage: 25MG-600MG
     Route: 048
     Dates: start: 19980101
  3. SEROQUEL [Suspect]
     Dosage: 25 MG ONE TAB AT NOON AND TWO AT BEDTIME
     Route: 048
     Dates: start: 20050607
  4. MEGACE [Concomitant]
  5. MIRALAX [Concomitant]
  6. MIRAPEX [Concomitant]
  7. PAXIL [Concomitant]
  8. AVANDIA [Concomitant]
  9. LANTUS [Concomitant]
  10. RENERON [Concomitant]
  11. SINEMET [Concomitant]
     Dosage: 25/100 AT 1300,1700 AND 2100
     Route: 048
     Dates: start: 20050629
  12. SYNTHROID [Concomitant]
  13. LEVAQUIN [Concomitant]
  14. SENSIPAR [Concomitant]
  15. TYLENOL [Concomitant]
  16. DEPAKENE [Concomitant]
  17. ZOLOFT [Concomitant]
  18. GLUCOTROL [Concomitant]
  19. LIPITOR [Concomitant]
  20. PRINIVIL [Concomitant]
  21. NORVASC [Concomitant]
  22. RANITIDINE [Concomitant]
     Route: 048
     Dates: start: 20050607
  23. CELEBREX [Concomitant]
  24. PREVACID [Concomitant]
  25. TRAMADOL HCL [Concomitant]
  26. OMEPRAZOLE [Concomitant]
     Route: 048
     Dates: start: 20050607

REACTIONS (27)
  - ABDOMINAL PAIN UPPER [None]
  - ADRENAL MASS [None]
  - AGITATION [None]
  - BACK PAIN [None]
  - COUGH [None]
  - DEMENTIA [None]
  - DYSPHAGIA [None]
  - EAR PAIN [None]
  - ESSENTIAL HYPERTENSION [None]
  - GASTROINTESTINAL HAEMORRHAGE [None]
  - GASTROOESOPHAGEAL REFLUX DISEASE [None]
  - HAEMATURIA [None]
  - HYPERTENSION [None]
  - MAJOR DEPRESSION [None]
  - MENTAL RETARDATION [None]
  - MYALGIA [None]
  - NAUSEA [None]
  - OEDEMA [None]
  - PANCREATITIS [None]
  - PSYCHOTIC DISORDER [None]
  - PULMONARY CONGESTION [None]
  - PYREXIA [None]
  - TREMOR [None]
  - TYPE 2 DIABETES MELLITUS [None]
  - URINARY TRACT INFECTION NEONATAL [None]
  - VOMITING [None]
  - WEIGHT DECREASED [None]
